FAERS Safety Report 9637375 (Version 3)
Quarter: 2013Q4

REPORT INFORMATION
  Report Type: Spontaneous
  Country: TW (occurrence: TW)
  Receive Date: 20131022
  Receipt Date: 20131230
  Transmission Date: 20140711
  Serious: Yes (Hospitalization, Other)
  Sender: FDA-Public Use
  Company Number: PHHY2013TW118381

PATIENT
  Age: 53 Year
  Sex: Female

DRUGS (2)
  1. LESCOL [Suspect]
     Indication: BLOOD CHOLESTEROL INCREASED
     Dosage: 1 DF, QD (ONE PILL PER DAY)
     Route: 048
  2. LESCOL [Suspect]
     Dosage: UNK UKN, UNK
     Route: 048
     Dates: start: 20131015, end: 20131016

REACTIONS (1)
  - Cholangitis [Recovered/Resolved]
